FAERS Safety Report 7099533-1 (Version None)
Quarter: 2010Q4

REPORT INFORMATION
  Report Type: 
  Country: None (occurrence: None)
  Receive Date: 20101112
  Receipt Date: 20101104
  Transmission Date: 20110411
  Serious: Yes (Hospitalization)
  Sender: FDA-Public Use
  Company Number: DE-B.I. PHARMACEUTICALS,INC./RIDGEFIELD-2010-DE-02503DE

PATIENT
  Sex: Male
  Weight: 130 kg

DRUGS (3)
  1. PRADAXA [Suspect]
     Indication: THROMBOSIS PROPHYLAXIS
     Dosage: 220 NR
     Route: 048
     Dates: start: 20100203, end: 20100226
  2. PRADAXA [Suspect]
     Indication: HIP ARTHROPLASTY
  3. PRADAXA [Suspect]
     Indication: KNEE ARTHROPLASTY

REACTIONS (1)
  - WOUND INFECTION [None]
